FAERS Safety Report 8509410-4 (Version None)
Quarter: 2012Q3

REPORT INFORMATION
  Report Type: 
  Country: None (occurrence: None)
  Receive Date: 20120713
  Receipt Date: 20100914
  Transmission Date: 20120928
  Serious: Yes (Hospitalization)
  Sender: FDA-Public Use
  Company Number: ZA-ROCHE-1087219

PATIENT
  Age: 21 Year
  Sex: Male

DRUGS (5)
  1. CELLCEPT [Suspect]
     Route: 048
  2. PREDNISONE [Concomitant]
  3. NEORAL [Concomitant]
  4. CELLCEPT [Suspect]
     Indication: LUNG TRANSPLANT
     Route: 048
  5. CELLCEPT [Suspect]
     Route: 048

REACTIONS (5)
  - LUNG TRANSPLANT REJECTION [None]
  - SINUSITIS [None]
  - MOOD SWINGS [None]
  - INFECTION [None]
  - RENAL DISORDER [None]
